FAERS Safety Report 9536074 (Version 1)
Quarter: 2013Q2

REPORT INFORMATION
  Report Type: Spontaneous
  Country: US (occurrence: None)
  Receive Date: 20130507
  Receipt Date: 20130507
  Transmission Date: 20140414
  Serious: No
  Sender: FDA-Public Use
  Company Number: PHEH2012US025652

PATIENT
  Age: 11 Year
  Sex: Male

DRUGS (5)
  1. AFINITOR (RAD) [Suspect]
     Indication: TUBEROUS SCLEROSIS
     Route: 048
     Dates: start: 20121222, end: 20121228
  2. DEPAKOTE (VALPROATE SEMISODIUM) [Concomitant]
  3. VIGABATRIN [Concomitant]
  4. LAMICTAL (LAMOTRIGINE) [Concomitant]
  5. PEPCID (FAMOTIDINE) [Concomitant]

REACTIONS (5)
  - Thirst [None]
  - Abnormal behaviour [None]
  - Rash [None]
  - Vomiting [None]
  - Fatigue [None]
